FAERS Safety Report 18057085 (Version 3)
Quarter: 2020Q3

REPORT INFORMATION
  Report Type: Spontaneous
  Country: IT (occurrence: IT)
  Receive Date: 20200723
  Receipt Date: 20200806
  Transmission Date: 20201104
  Serious: Yes (Other)
  Sender: FDA-Public Use
  Company Number: IT-ROCHE-2646516

PATIENT
  Age: 63 Year
  Sex: Female
  Weight: 65 kg

DRUGS (2)
  1. ALECTINIB. [Suspect]
     Active Substance: ALECTINIB
     Indication: PRODUCT USED FOR UNKNOWN INDICATION
     Route: 065
     Dates: start: 20190911, end: 202006
  2. ALECTINIB. [Suspect]
     Active Substance: ALECTINIB
     Route: 065
     Dates: start: 202006, end: 20200718

REACTIONS (3)
  - Vitreous detachment [Unknown]
  - Blood creatine phosphokinase increased [Unknown]
  - Constipation [Unknown]

NARRATIVE: CASE EVENT DATE: 20200713
